FAERS Safety Report 9933760 (Version 2)
Quarter: 2014Q1

REPORT INFORMATION
  Report Type: Report from Study
  Country: US (occurrence: US)
  Receive Date: 20140228
  Receipt Date: 20140228
  Transmission Date: 20141002
  Serious: No
  Sender: FDA-Public Use
  Company Number: US-MYLANLABS-2013S1013070

PATIENT
  Age: 17 Year
  Sex: Female

DRUGS (2)
  1. CLARAVIS [Suspect]
     Indication: ACNE
     Route: 048
     Dates: start: 20121220, end: 20130122
  2. AMNESTEEM CAPSULES [Suspect]
     Indication: ACNE
     Route: 048
     Dates: start: 20130123, end: 2013

REACTIONS (2)
  - Drug effect decreased [Not Recovered/Not Resolved]
  - Acne [Not Recovered/Not Resolved]
